FAERS Safety Report 25888152 (Version 1)
Quarter: 2025Q4

REPORT INFORMATION
  Report Type: Spontaneous
  Country: US (occurrence: US)
  Receive Date: 20251007
  Receipt Date: 20251007
  Transmission Date: 20260117
  Serious: Yes (Hospitalization)
  Sender: STRIDES
  Company Number: US-STRIDES PHARMA UK LTD.-2024SP017241

PATIENT

DRUGS (35)
  1. PREDNISOLONE [Suspect]
     Active Substance: PREDNISOLONE
     Indication: Diffuse large B-cell lymphoma
     Dosage: UNK, R-CHOP (CYCLICAL)
     Route: 065
  2. PREDNISOLONE [Suspect]
     Active Substance: PREDNISOLONE
     Indication: Salvage therapy
     Dosage: UNK, (R-IGEV) CYCLICAL
     Route: 065
  3. DOXORUBICIN [Suspect]
     Active Substance: DOXORUBICIN
     Indication: Diffuse large B-cell lymphoma
     Dosage: UNK, (R-CHOP) CYCLICAL
     Route: 065
  4. RITUXIMAB [Suspect]
     Active Substance: RITUXIMAB
     Indication: Diffuse large B-cell lymphoma
     Dosage: UNK, (R-CHOP) CYCLICAL
     Route: 065
  5. RITUXIMAB [Suspect]
     Active Substance: RITUXIMAB
     Dosage: UNK, (R-DHAP) CYCLICAL
     Route: 065
  6. RITUXIMAB [Suspect]
     Active Substance: RITUXIMAB
     Dosage: UNK, (R-IGEV) CYCLICAL
     Route: 065
  7. RITUXIMAB [Suspect]
     Active Substance: RITUXIMAB
     Dosage: UNK, (POLA-BR)
     Route: 065
  8. CYCLOPHOSPHAMIDE [Suspect]
     Active Substance: CYCLOPHOSPHAMIDE
     Indication: Diffuse large B-cell lymphoma
     Dosage: UNK, CYCLICAL
     Route: 065
  9. CYCLOPHOSPHAMIDE [Suspect]
     Active Substance: CYCLOPHOSPHAMIDE
     Dosage: UNK
     Route: 065
  10. VINCRISTINE [Suspect]
     Active Substance: VINCRISTINE
     Indication: Diffuse large B-cell lymphoma
     Dosage: UNK, (R-CHOP) CYCLICAL
     Route: 065
  11. DEXAMETHASONE [Suspect]
     Active Substance: DEXAMETHASONE
     Indication: Salvage therapy
     Dosage: UNK, (R-DHAP) CYCLICAL
     Route: 065
  12. DEXAMETHASONE [Suspect]
     Active Substance: DEXAMETHASONE
     Indication: Prophylaxis
     Dosage: UNK
     Route: 065
  13. DEXAMETHASONE [Suspect]
     Active Substance: DEXAMETHASONE
     Indication: Diffuse large B-cell lymphoma
     Dosage: UNK, ONE DOSE
     Route: 042
  14. CYTARABINE [Suspect]
     Active Substance: CYTARABINE
     Indication: Salvage therapy
     Dosage: UNK, (R-DHAP) CYCLICAL
     Route: 065
  15. CYTARABINE [Suspect]
     Active Substance: CYTARABINE
     Indication: Diffuse large B-cell lymphoma
  16. CISPLATIN [Suspect]
     Active Substance: CISPLATIN
     Indication: Salvage therapy
     Dosage: UNK, (R-DHAP) CYCLICAL
     Route: 065
  17. CISPLATIN [Suspect]
     Active Substance: CISPLATIN
     Indication: Diffuse large B-cell lymphoma
  18. IFOSFAMIDE [Suspect]
     Active Substance: IFOSFAMIDE
     Indication: Salvage therapy
     Dosage: UNK, R-IGEV, CYCLICAL
     Route: 065
  19. IFOSFAMIDE [Suspect]
     Active Substance: IFOSFAMIDE
     Indication: Diffuse large B-cell lymphoma
  20. MESNA [Suspect]
     Active Substance: MESNA
     Indication: Salvage therapy
     Dosage: UNK, R-IGEV, CYCLICAL
     Route: 065
  21. MESNA [Suspect]
     Active Substance: MESNA
     Indication: Diffuse large B-cell lymphoma
  22. BENDAMUSTINE [Suspect]
     Active Substance: BENDAMUSTINE
     Indication: Chemotherapy
     Dosage: UNK, POLA-BR
     Route: 065
  23. BENDAMUSTINE [Suspect]
     Active Substance: BENDAMUSTINE
     Indication: Diffuse large B-cell lymphoma
  24. GEMCITABINE [Suspect]
     Active Substance: GEMCITABINE
     Indication: Salvage therapy
     Dosage: UNK, R-IGEV, CYCLICAL
     Route: 065
  25. GEMCITABINE [Suspect]
     Active Substance: GEMCITABINE
     Indication: Diffuse large B-cell lymphoma
  26. VINORELBINE [Suspect]
     Active Substance: VINORELBINE TARTRATE
     Indication: Salvage therapy
     Dosage: UNK, R-IGEV , CYCLICAL
     Route: 065
  27. FLUDARABINE [Suspect]
     Active Substance: FLUDARABINE PHOSPHATE
     Indication: Diffuse large B-cell lymphoma
     Dosage: UNK
     Route: 065
  28. IMMUNE GLOBULIN NOS [Suspect]
     Active Substance: IMMUNE GLOBULIN NOS
     Indication: Neutropenia
     Dosage: 30 GRAM
     Route: 065
  29. CEFTRIAXONE [Concomitant]
     Active Substance: CEFTRIAXONE
     Indication: Evidence based treatment
     Dosage: UNK
     Route: 065
  30. VANCOMYCIN [Concomitant]
     Active Substance: VANCOMYCIN
     Indication: Evidence based treatment
     Dosage: UNK
     Route: 065
  31. CEFEPIME [Concomitant]
     Active Substance: CEFEPIME HYDROCHLORIDE
     Indication: Evidence based treatment
     Dosage: UNK
     Route: 042
  32. LEVOFLOXACIN [Concomitant]
     Active Substance: LEVOFLOXACIN
     Indication: Prophylaxis
     Dosage: UNK
     Route: 065
  33. FLUCONAZOLE [Concomitant]
     Active Substance: FLUCONAZOLE
     Indication: Prophylaxis
     Dosage: UNK
     Route: 065
  34. ACYCLOVIR [Concomitant]
     Active Substance: ACYCLOVIR
     Indication: Prophylaxis
     Dosage: UNK
     Route: 065
  35. AXICABTAGENE CILOLEUCEL [Concomitant]
     Active Substance: AXICABTAGENE CILOLEUCEL
     Indication: Diffuse large B-cell lymphoma
     Dosage: UNK
     Route: 065

REACTIONS (4)
  - Pneumocystis jirovecii pneumonia [Recovered/Resolved]
  - Campylobacter gastroenteritis [Recovered/Resolved]
  - COVID-19 [Recovered/Resolved]
  - Cytomegalovirus viraemia [Recovered/Resolved]
